FAERS Safety Report 5113662-0 (Version None)
Quarter: 2006Q3

REPORT INFORMATION
  Report Type: 
  Country: None (occurrence: None)
  Receive Date: 20060921
  Receipt Date: 20060921
  Transmission Date: 20061208
  Serious: Yes (Death)
  Sender: FDA-Public Use
  Company Number: None

PATIENT
  Sex: Male
  Weight: 106.5 kg

DRUGS (11)
  1. PROPOFOL [Suspect]
     Indication: STATUS EPILEPTICUS
     Dosage: 50-100 (AVERAGE 89.5) MCG/KG/MIN  92.5 HOURS
     Dates: start: 20060210, end: 20060214
  2. ACETAMINOPHEN [Concomitant]
  3. INSULIN [Concomitant]
  4. DEXAMETHASONE TAB [Concomitant]
  5. LAMOTRIGINE [Concomitant]
  6. PENICILLIN G POTASSIUM [Concomitant]
  7. PHENOBARBITAL [Concomitant]
  8. PHENYTOIN [Concomitant]
  9. RANITIDINE [Concomitant]
  10. AMIODARONE HCL [Concomitant]
  11. HEPARIN [Concomitant]

REACTIONS (6)
  - BLOOD CREATINE PHOSPHOKINASE INCREASED [None]
  - BLOOD CREATININE INCREASED [None]
  - CARDIAC ARREST [None]
  - METABOLIC ACIDOSIS [None]
  - PROPOFOL INFUSION SYNDROME [None]
  - VENTRICULAR TACHYCARDIA [None]
